FAERS Safety Report 10247240 (Version 1)
Quarter: 2014Q2

REPORT INFORMATION
  Report Type: Spontaneous
  Country: CA (occurrence: CA)
  Receive Date: 20140619
  Receipt Date: 20140619
  Transmission Date: 20141212
  Serious: Yes (Other)
  Sender: FDA-Public Use
  Company Number: CA-GLAXOSMITHKLINE-A1077189A

PATIENT
  Age: 67 Year
  Sex: Female
  Weight: 61.4 kg

DRUGS (3)
  1. REQUIP [Suspect]
     Indication: PRODUCT USED FOR UNKNOWN INDICATION
     Dosage: 2MG THREE TIMES PER DAY
     Route: 048
  2. AMANTADINE [Concomitant]
  3. LEVODOPA/CARBIDOPA [Concomitant]

REACTIONS (2)
  - Alcoholism [Recovered/Resolved]
  - Pathological gambling [Unknown]
